FAERS Safety Report 24229209 (Version 2)
Quarter: 2024Q3

REPORT INFORMATION
  Report Type: Spontaneous
  Country: US (occurrence: US)
  Receive Date: 20240820
  Receipt Date: 20240905
  Transmission Date: 20241017
  Serious: No
  Sender: ROCHE
  Company Number: US-ROCHE-10000055176

PATIENT
  Age: 34 Year
  Sex: Female

DRUGS (3)
  1. XOLAIR [Suspect]
     Active Substance: OMALIZUMAB
     Indication: Asthma
     Dosage: STRENGTH:150MG/ML
     Route: 058
     Dates: start: 202107
  2. HAEGARDA [Concomitant]
     Active Substance: HUMAN C1-ESTERASE INHIBITOR
  3. RUCONEST SDV [Concomitant]

REACTIONS (2)
  - Gastrointestinal disorder [Recovered/Resolved]
  - Genital disorder [Recovered/Resolved]

NARRATIVE: CASE EVENT DATE: 20240806
